FAERS Safety Report 11637737 (Version 3)
Quarter: 2015Q4

REPORT INFORMATION
  Report Type: Spontaneous
  Country: PR (occurrence: PR)
  Receive Date: 20151016
  Receipt Date: 20151201
  Transmission Date: 20160304
  Serious: Yes (Hospitalization)
  Sender: FDA-Public Use
  Company Number: PR-UNITED THERAPEUTICS-UNT-2015-012747

PATIENT
  Sex: Female

DRUGS (1)
  1. TYVASO [Suspect]
     Active Substance: TREPROSTINIL
     Indication: PULMONARY ARTERIAL HYPERTENSION
     Dosage: 24 ?G, QID
     Dates: start: 20140218

REACTIONS (4)
  - Phlebitis [Not Recovered/Not Resolved]
  - Disease progression [Unknown]
  - Oedema [Unknown]
  - Productive cough [Unknown]

NARRATIVE: CASE EVENT DATE: 20150915
